FAERS Safety Report 11150121 (Version 2)
Quarter: 2015Q2

REPORT INFORMATION
  Report Type: Spontaneous
  Country: US (occurrence: US)
  Receive Date: 20150529
  Receipt Date: 20150612
  Transmission Date: 20150821
  Serious: Yes (Other)
  Sender: FDA-Public Use
  Company Number: US-ASTRAZENECA-2015SE51507

PATIENT
  Sex: Female
  Weight: 98.4 kg

DRUGS (15)
  1. ADDERALL [Concomitant]
     Active Substance: AMPHETAMINE ASPARTATE\AMPHETAMINE SULFATE\DEXTROAMPHETAMINE SACCHARATE\DEXTROAMPHETAMINE SULFATE
     Indication: ATTENTION DEFICIT/HYPERACTIVITY DISORDER
  2. FLEXERIL [Concomitant]
     Active Substance: CYCLOBENZAPRINE HYDROCHLORIDE
     Indication: MUSCLE SPASMS
  3. VITAMIN D [Concomitant]
     Active Substance: CHOLECALCIFEROL
  4. BENADRYL [Concomitant]
     Active Substance: DIPHENHYDRAMINE HYDROCHLORIDE
     Indication: MULTIPLE ALLERGIES
  5. XANAX [Concomitant]
     Active Substance: ALPRAZOLAM
     Indication: ANXIETY
  6. OMEPRAZOLE. [Suspect]
     Active Substance: OMEPRAZOLE
     Indication: ABDOMINAL DISCOMFORT
     Route: 048
  7. TENORMIN [Suspect]
     Active Substance: ATENOLOL
     Route: 048
  8. SEROQUEL XR [Suspect]
     Active Substance: QUETIAPINE FUMARATE
     Indication: MAJOR DEPRESSION
     Route: 048
     Dates: start: 201412, end: 2015
  9. INDERAL [Concomitant]
     Active Substance: PROPRANOLOL HYDROCHLORIDE
     Indication: BLOOD PRESSURE ABNORMAL
  10. IMODIUM [Concomitant]
     Active Substance: LOPERAMIDE HYDROCHLORIDE
     Indication: IRRITABLE BOWEL SYNDROME
     Dosage: AS REQUIRED
  11. ASPRIRIN [Concomitant]
     Dosage: DAILY
  12. MULTIVITAMIN [Concomitant]
     Active Substance: VITAMINS
     Dosage: TWO TIMES A DAY
  13. PERPHENAZINE. [Suspect]
     Active Substance: PERPHENAZINE
     Route: 048
  14. EFFEXOR [Concomitant]
     Active Substance: VENLAFAXINE HYDROCHLORIDE
     Indication: DEPRESSION
  15. CALCIUM [Concomitant]
     Active Substance: CALCIUM

REACTIONS (6)
  - Mental disorder [Unknown]
  - Fall [Not Recovered/Not Resolved]
  - Feeling abnormal [Unknown]
  - Off label use [Unknown]
  - Drug hypersensitivity [Unknown]
  - Weight increased [Not Recovered/Not Resolved]

NARRATIVE: CASE EVENT DATE: 201505
